FAERS Safety Report 16981413 (Version 1)
Quarter: 2019Q4

REPORT INFORMATION
  Report Type: Spontaneous
  Country: US (occurrence: US)
  Receive Date: 20191031
  Receipt Date: 20191031
  Transmission Date: 20200122
  Serious: Yes (Hospitalization)
  Sender: FDA-Public Use
  Company Number: US-ABBVIE-19K-163-2660987-00

PATIENT
  Sex: Male

DRUGS (3)
  1. FLUTICASONE PROPIONATE. [Concomitant]
     Active Substance: FLUTICASONE PROPIONATE
     Indication: RHINITIS ALLERGIC
     Dosage: 2 SPRAYS IN EACH NOSTRIL Q DAILY
     Route: 045
     Dates: start: 20140404
  2. TRAZODONE HYDROCHLORIDE. [Concomitant]
     Active Substance: TRAZODONE HYDROCHLORIDE
     Indication: INSOMNIA
     Dosage: Q BEDTIME
     Route: 048
     Dates: start: 20150606
  3. BIAXIN [Suspect]
     Active Substance: CLARITHROMYCIN
     Indication: PRODUCT USED FOR UNKNOWN INDICATION
     Route: 065
     Dates: start: 1990

REACTIONS (24)
  - Hypertension [Unknown]
  - Migraine [Recovered/Resolved]
  - Carpal tunnel syndrome [Unknown]
  - Drug hypersensitivity [Unknown]
  - Presyncope [Recovered/Resolved]
  - Skin papilloma [Recovered/Resolved]
  - Cardiomegaly [Unknown]
  - Urinary incontinence [Unknown]
  - Obesity [Unknown]
  - Type 2 diabetes mellitus [Unknown]
  - Major depression [Unknown]
  - Gastrooesophageal reflux disease [Unknown]
  - Back pain [Recovered/Resolved]
  - Skin papilloma [Recovered/Resolved]
  - Chest pain [Recovered/Resolved]
  - Intervertebral disc protrusion [Unknown]
  - Type V hyperlipidaemia [Unknown]
  - Sleep apnoea syndrome [Unknown]
  - Cardioversion [Recovered/Resolved]
  - Vertigo [Unknown]
  - Coronary artery disease [Unknown]
  - Hypoaesthesia [Unknown]
  - Osteoarthritis [Unknown]
  - Pain in extremity [Unknown]

NARRATIVE: CASE EVENT DATE: 1990
